FAERS Safety Report 5946985-3 (Version None)
Quarter: 2008Q4

REPORT INFORMATION
  Report Type: 
  Country: None (occurrence: None)
  Receive Date: 20081107
  Receipt Date: 20081107
  Transmission Date: 20090506
  Serious: Yes (Other)
  Sender: FDA-Public Use
  Company Number: None

PATIENT
  Sex: Female

DRUGS (1)
  1. ALENDRONATE SODIUM [Suspect]
     Indication: OSTEOPOROSIS
     Dosage: 70MG EVERY WEEK PO
     Route: 048
     Dates: start: 20081102, end: 20081102

REACTIONS (3)
  - ABDOMINAL PAIN UPPER [None]
  - OESOPHAGEAL PAIN [None]
  - PRODUCT QUALITY ISSUE [None]
